FAERS Safety Report 20839388 (Version 1)
Quarter: 2022Q2

REPORT INFORMATION
  Report Type: Spontaneous
  Country: US (occurrence: None)
  Receive Date: 20220516
  Receipt Date: 20220516
  Transmission Date: 20220721
  Serious: Yes (Hospitalization)
  Sender: FDA-Public Use
  Company Number: None

PATIENT
  Sex: Female

DRUGS (1)
  1. CAPECITABINE [Suspect]
     Active Substance: CAPECITABINE
     Indication: Rectal cancer
     Dosage: OTHER QUANTITY : 2000MG AM/1500MG P;?FREQUENCY : TWICE A DAY;?
     Route: 048
     Dates: start: 20220125

REACTIONS (5)
  - Dehydration [None]
  - Diarrhoea [None]
  - Nausea [None]
  - Vomiting [None]
  - Renal impairment [None]
